FAERS Safety Report 17175593 (Version 2)
Quarter: 2019Q4

REPORT INFORMATION
  Report Type: Spontaneous
  Country: CN (occurrence: CN)
  Receive Date: 20191219
  Receipt Date: 20191226
  Transmission Date: 20200122
  Serious: Yes (Other)
  Sender: FDA-Public Use
  Company Number: CN-ASTRAZENECA-2019SF82537

PATIENT
  Sex: Female

DRUGS (2)
  1. TRADITIONAL CHINESE MEDICINE [Concomitant]
     Active Substance: HERBALS\HOMEOPATHICS
  2. IRESSA [Suspect]
     Active Substance: GEFITINIB
     Indication: NON-SMALL CELL LUNG CANCER
     Dosage: ONE TABLET EVERY DAY, SOMETIMES EATEN IN THE MORNING AND SOMETIMES EATEN AT NIGHT
     Route: 048

REACTIONS (4)
  - Metastases to central nervous system [Unknown]
  - Vomiting [Recovered/Resolved]
  - Discomfort [Unknown]
  - Headache [Recovered/Resolved]
